FAERS Safety Report 13465773 (Version 3)
Quarter: 2017Q2

REPORT INFORMATION
  Report Type: Spontaneous
  Country: IT (occurrence: IT)
  Receive Date: 20170421
  Receipt Date: 20170522
  Transmission Date: 20170830
  Serious: Yes (Other)
  Sender: FDA-Public Use
  Company Number: IT-ROCHE-1923137

PATIENT
  Age: 41 Year
  Sex: Female
  Weight: 55 kg

DRUGS (2)
  1. ZELBORAF [Suspect]
     Active Substance: VEMURAFENIB
     Indication: MALIGNANT MELANOMA
     Dosage: 240 MG BLISTER PACK (AL/AL)^ 56 TABLETS
     Route: 048
     Dates: start: 20170314, end: 20170406
  2. COTELLIC [Suspect]
     Active Substance: COBIMETINIB
     Indication: MALIGNANT MELANOMA
     Dosage: - 20 MG BLISTER PACK - 63 (3 X 21) TABLETS
     Route: 048
     Dates: start: 20170314, end: 20170406

REACTIONS (1)
  - Stevens-Johnson syndrome [Recovered/Resolved]

NARRATIVE: CASE EVENT DATE: 20170405
